FAERS Safety Report 21515217 (Version 2)
Quarter: 2022Q4

REPORT INFORMATION
  Report Type: Spontaneous
  Country: CN (occurrence: CN)
  Receive Date: 20221027
  Receipt Date: 20221128
  Transmission Date: 20230113
  Serious: Yes (Other)
  Sender: FDA-Public Use
  Company Number: CN-BAYER-2022A144582

PATIENT
  Age: 60 Year
  Sex: Male

DRUGS (2)
  1. STIVARGA [Suspect]
     Active Substance: REGORAFENIB
     Indication: Hepatic cancer
     Dosage: 80 MG
     Route: 048
     Dates: start: 202202
  2. TISLELIZUMAB [Suspect]
     Active Substance: TISLELIZUMAB
     Indication: Hepatic cancer
     Dosage: UNK
     Dates: start: 202202

REACTIONS (10)
  - Hepatic cirrhosis [Unknown]
  - Nephrolithiasis [Unknown]
  - Diarrhoea [Recovering/Resolving]
  - Rash [Recovering/Resolving]
  - Hypertension [Recovering/Resolving]
  - Hepatic cyst [Unknown]
  - Splenomegaly [Unknown]
  - Renal cyst [Unknown]
  - Liver disorder [Unknown]
  - Off label use [None]

NARRATIVE: CASE EVENT DATE: 20220201
